FAERS Safety Report 5047106-4 (Version None)
Quarter: 2006Q3

REPORT INFORMATION
  Report Type: 
  Country: None (occurrence: None)
  Receive Date: 20060703
  Receipt Date: 20060619
  Transmission Date: 20061208
  Serious: Yes (Hospitalization)
  Sender: FDA-Public Use
  Company Number: 233843K06USA

PATIENT
  Age: 59 Year
  Sex: Male

DRUGS (4)
  1. REBIF [Suspect]
     Indication: MULTIPLE SCLEROSIS
     Dosage: 44 MCG, 3 IN 1 WEEKS, SUBCUTANEOUS
     Route: 058
     Dates: start: 20050501
  2. PNEUMONIA SHOT (PNEUMOCOCCAL VACCINE) [Concomitant]
  3. FLU SHOT (INFLUENZA VIRUS VACCINE POLYVALENT) [Concomitant]
  4. TYLENOL (COTYLENOL) [Concomitant]

REACTIONS (6)
  - ATRIAL FIBRILLATION [None]
  - BLOOD CHOLESTEROL INCREASED [None]
  - BODY TEMPERATURE INCREASED [None]
  - HYPOAESTHESIA [None]
  - MULTIPLE SCLEROSIS RELAPSE [None]
  - TREMOR [None]
